FAERS Safety Report 4667243-3 (Version None)
Quarter: 2005Q2

REPORT INFORMATION
  Report Type: 
  Country: None (occurrence: None)
  Receive Date: 20050520
  Receipt Date: 20050422
  Transmission Date: 20051028
  Serious: No
  Sender: FDA-Public Use
  Company Number: US-BRISTOL-MYERS SQUIBB COMPANY-12944914

PATIENT
  Sex: Female

DRUGS (7)
  1. SINEMET [Suspect]
     Indication: PARKINSON'S DISEASE
     Dosage: DOSE VALUE: 4 TO 5 TABLETS PER DAY.
     Route: 048
     Dates: start: 20050101
  2. ARTANE [Concomitant]
  3. VASOTEC [Concomitant]
  4. CALCITONIN [Concomitant]
  5. CALCIUM GLUCONATE [Concomitant]
  6. MULTI-VITAMINS [Concomitant]
  7. ASPIRIN [Concomitant]

REACTIONS (2)
  - DYSKINESIA [None]
  - HEADACHE [None]
